FAERS Safety Report 24865040 (Version 2)
Quarter: 2025Q1

REPORT INFORMATION
  Report Type: Spontaneous
  Country: US (occurrence: US)
  Receive Date: 20250121
  Receipt Date: 20250319
  Transmission Date: 20250408
  Serious: No
  Sender: FDC LIMITED
  Company Number: US-FDC-2024USSPO00963

PATIENT
  Sex: Female

DRUGS (1)
  1. TIMOLOL MALEATE [Suspect]
     Active Substance: TIMOLOL MALEATE
     Indication: Glaucoma
     Route: 047
     Dates: start: 2024

REACTIONS (4)
  - Incorrect dose administered [Unknown]
  - Product delivery mechanism issue [Unknown]
  - Product packaging issue [Unknown]
  - Product substitution [Unknown]

NARRATIVE: CASE EVENT DATE: 20241128
